FAERS Safety Report 8924182 (Version 2)
Quarter: 2013Q1

REPORT INFORMATION
  Report Type: Spontaneous
  Country: CA (occurrence: CA)
  Receive Date: 20121126
  Receipt Date: 20130205
  Transmission Date: 20140127
  Serious: Yes (Death, Hospitalization)
  Sender: FDA-Public Use
  Company Number: CA-GLAXOSMITHKLINE-A0968663A

PATIENT
  Age: 48 Year
  Sex: Female

DRUGS (15)
  1. VOTRIENT [Suspect]
     Indication: RENAL CANCER METASTATIC
     Dosage: 400MG TWICE PER DAY
     Route: 048
     Dates: start: 20120206
  2. DILAUDID [Suspect]
     Indication: PRODUCT USED FOR UNKNOWN INDICATION
     Route: 065
  3. WELLBUTRIN [Concomitant]
     Dosage: 150MG UNKNOWN
     Route: 065
  4. IMOVANE [Concomitant]
     Route: 065
  5. MULTIVITAMINS [Concomitant]
     Route: 065
  6. LUCOZADE [Concomitant]
  7. LACTULOSE [Concomitant]
  8. MORPHINE [Concomitant]
  9. SENOKOT [Concomitant]
  10. ZOMETA [Concomitant]
  11. AMLODIPINE [Concomitant]
  12. ADVIL [Concomitant]
  13. CIPRALEX [Concomitant]
  14. PANTOLOC [Concomitant]
  15. COLACE [Concomitant]

REACTIONS (9)
  - Nausea [Not Recovered/Not Resolved]
  - Hypophagia [Unknown]
  - Dyspepsia [Recovered/Resolved]
  - Dyspepsia [Recovered/Resolved]
  - Alopecia [Not Recovered/Not Resolved]
  - Hair colour changes [Not Recovered/Not Resolved]
  - Alopecia [Not Recovered/Not Resolved]
  - Lung disorder [Not Recovered/Not Resolved]
  - Death [Fatal]
